FAERS Safety Report 8977938 (Version 2)
Quarter: 2013Q1

REPORT INFORMATION
  Report Type: Spontaneous
  Country: US (occurrence: US)
  Receive Date: 20121219
  Receipt Date: 20130130
  Transmission Date: 20140127
  Serious: Yes (Hospitalization)
  Sender: FDA-Public Use
  Company Number: US-ROXANE LABORATORIES, INC.-2012-RO-02597RO

PATIENT
  Sex: Male

DRUGS (4)
  1. RISPERIDONE [Suspect]
     Indication: AUTISM
     Dosage: 0.8 ML
     Route: 048
     Dates: start: 201210, end: 201210
  2. RISPERIDONE [Suspect]
     Dosage: 1.6 ML
     Route: 048
     Dates: start: 201210, end: 201210
  3. MIRTAZAPINE [Concomitant]
  4. CLONIDINE [Concomitant]

REACTIONS (3)
  - Drug ineffective [Recovered/Resolved]
  - Abnormal behaviour [Recovered/Resolved]
  - Product quality issue [Recovered/Resolved]
